FAERS Safety Report 8332730-3 (Version None)
Quarter: 2012Q2

REPORT INFORMATION
  Report Type: 
  Country: None (occurrence: None)
  Receive Date: 20120503
  Receipt Date: 20120424
  Transmission Date: 20120825
  Serious: Yes (Hospitalization, Other)
  Sender: FDA-Public Use
  Company Number: BR-US-EMD SERONO, INC.-7124890

PATIENT
  Sex: Female

DRUGS (8)
  1. CLONAZEPAM [Concomitant]
     Indication: PRODUCT USED FOR UNKNOWN INDICATION
  2. ACTONEL [Concomitant]
     Indication: PRODUCT USED FOR UNKNOWN INDICATION
  3. PREGABALINA [Concomitant]
     Indication: PRODUCT USED FOR UNKNOWN INDICATION
  4. PATASSIC LOSARTAN [Concomitant]
     Indication: PRODUCT USED FOR UNKNOWN INDICATION
  5. BACLOFENO [Concomitant]
     Indication: PRODUCT USED FOR UNKNOWN INDICATION
  6. AZATIOPRINA [Concomitant]
     Indication: PRODUCT USED FOR UNKNOWN INDICATION
  7. CALCIUM CARBONATE [Concomitant]
     Indication: PRODUCT USED FOR UNKNOWN INDICATION
  8. REBIF [Suspect]
     Indication: RELAPSING-REMITTING MULTIPLE SCLEROSIS
     Dates: start: 20050131

REACTIONS (7)
  - ERYTHEMA [None]
  - THROMBOSIS [None]
  - OEDEMA PERIPHERAL [None]
  - FALL [None]
  - NERVOUSNESS [None]
  - PROSTHESIS IMPLANTATION [None]
  - PAIN IN EXTREMITY [None]
